FAERS Safety Report 18503413 (Version 2)
Quarter: 2020Q4

REPORT INFORMATION
  Report Type: Spontaneous
  Country: US (occurrence: US)
  Receive Date: 20201113
  Receipt Date: 20201117
  Transmission Date: 20210114
  Serious: Yes (Death, Other)
  Sender: FDA-Public Use
  Company Number: US-PFIZER INC-2020446873

PATIENT
  Age: 32 Year
  Sex: Male
  Weight: 99.79 kg

DRUGS (1)
  1. DILANTIN [Suspect]
     Active Substance: PHENYTOIN
     Indication: ALCOHOL DETOXIFICATION
     Dosage: UNK
     Dates: start: 2015

REACTIONS (8)
  - Drug hypersensitivity [Fatal]
  - Gastrointestinal injury [Unknown]
  - Sepsis [Fatal]
  - Toxic epidermal necrolysis [Unknown]
  - Off label use [Unknown]
  - Stevens-Johnson syndrome [Fatal]
  - Contraindicated product administered [Fatal]
  - Abdominal distension [Unknown]

NARRATIVE: CASE EVENT DATE: 2015
